FAERS Safety Report 8934121 (Version 2)
Quarter: 2012Q4

REPORT INFORMATION
  Report Type: Report from Study
  Country: US (occurrence: US)
  Receive Date: 20121129
  Receipt Date: 20121224
  Transmission Date: 20130627
  Serious: Yes (Death, Hospitalization)
  Sender: FDA-Public Use
  Company Number: US-ROCHE-1158333

PATIENT
  Sex: Female

DRUGS (1)
  1. CAPECITABINE [Suspect]
     Indication: PRODUCT USED FOR UNKNOWN INDICATION
     Route: 065

REACTIONS (9)
  - Breast cancer metastatic [Fatal]
  - Breast cancer metastatic [Fatal]
  - Breast cancer metastatic [Fatal]
  - Mucosal inflammation [Unknown]
  - Diarrhoea [Unknown]
  - Blood albumin decreased [Unknown]
  - Constipation [Unknown]
  - Fungal infection [Unknown]
  - Herpes virus infection [Unknown]
